FAERS Safety Report 19420301 (Version 2)
Quarter: 2025Q3

REPORT INFORMATION
  Report Type: Spontaneous
  Country: EU (occurrence: EU)
  Receive Date: 20210615
  Receipt Date: 20250702
  Transmission Date: 20251021
  Serious: Yes (Hospitalization, Disabling, Other)
  Sender: TAKEDA
  Company Number: EU-ROCHE-2815247

PATIENT
  Age: 49 Year
  Sex: Male
  Weight: 85 kg

DRUGS (32)
  1. KIOVIG [Suspect]
     Active Substance: HUMAN IMMUNOGLOBULIN G
     Indication: Immunoglobulins decreased
  2. PRIVIGEN [Suspect]
     Active Substance: HUMAN IMMUNOGLOBULIN G
     Indication: Chronic lymphocytic leukaemia
  3. KEPPRA [Suspect]
     Active Substance: LEVETIRACETAM
     Indication: Epilepsy
     Dates: start: 20160727, end: 20170710
  4. URSODIOL [Suspect]
     Active Substance: URSODIOL
     Indication: Drug-induced liver injury
     Dates: start: 201602, end: 201603
  5. FLUDARABINE [Suspect]
     Active Substance: FLUDARABINE PHOSPHATE
     Indication: Chronic lymphocytic leukaemia
  6. FLUDARABINE [Suspect]
     Active Substance: FLUDARABINE PHOSPHATE
  7. FLUDARABINE [Suspect]
     Active Substance: FLUDARABINE PHOSPHATE
  8. FLUDARABINE [Suspect]
     Active Substance: FLUDARABINE PHOSPHATE
  9. FLUDARABINE [Suspect]
     Active Substance: FLUDARABINE PHOSPHATE
  10. FLUDARABINE [Suspect]
     Active Substance: FLUDARABINE PHOSPHATE
  11. FLUDARABINE [Suspect]
     Active Substance: FLUDARABINE PHOSPHATE
  12. FLUDARABINE [Suspect]
     Active Substance: FLUDARABINE PHOSPHATE
  13. FLUDARABINE [Suspect]
     Active Substance: FLUDARABINE PHOSPHATE
  14. CYCLOPHOSPHAMIDE [Suspect]
     Active Substance: CYCLOPHOSPHAMIDE
     Indication: Chronic lymphocytic leukaemia
     Dates: start: 20141118, end: 20150407
  15. CYCLOPHOSPHAMIDE [Suspect]
     Active Substance: CYCLOPHOSPHAMIDE
  16. CYCLOPHOSPHAMIDE [Suspect]
     Active Substance: CYCLOPHOSPHAMIDE
  17. CYCLOPHOSPHAMIDE [Suspect]
     Active Substance: CYCLOPHOSPHAMIDE
  18. OBINUTUZUMAB [Suspect]
     Active Substance: OBINUTUZUMAB
     Indication: Chronic lymphocytic leukaemia
     Dates: start: 20141118, end: 20150407
  19. OBINUTUZUMAB [Suspect]
     Active Substance: OBINUTUZUMAB
  20. OBINUTUZUMAB [Suspect]
     Active Substance: OBINUTUZUMAB
  21. OBINUTUZUMAB [Suspect]
     Active Substance: OBINUTUZUMAB
  22. OBINUTUZUMAB [Suspect]
     Active Substance: OBINUTUZUMAB
  23. OBINUTUZUMAB [Suspect]
     Active Substance: OBINUTUZUMAB
  24. OBINUTUZUMAB [Suspect]
     Active Substance: OBINUTUZUMAB
  25. CIPROFLOXACIN [Concomitant]
     Active Substance: CIPROFLOXACIN
  26. AMPHOTERICIN B [Concomitant]
     Active Substance: AMPHOTERICIN B
  27. PANTOPRAZOLE SODIUM [Concomitant]
     Active Substance: PANTOPRAZOLE SODIUM
  28. Solu-decortin h [Concomitant]
  29. CHOLECALCIFEROL [Concomitant]
     Active Substance: CHOLECALCIFEROL
     Dosage: 20000 INTERNATIONAL UNIT, QD
  30. ALLOPURINOL [Concomitant]
     Active Substance: ALLOPURINOL
     Dosage: 300 MILLIGRAM, QD
  31. Jonosteril [Concomitant]
  32. LEUCOVORIN CALCIUM [Concomitant]
     Active Substance: LEUCOVORIN CALCIUM
     Dosage: 15 MILLIGRAM

REACTIONS (51)
  - Epilepsy [Not Recovered/Not Resolved]
  - Large intestinal stenosis [Recovered/Resolved]
  - Respiratory failure [Unknown]
  - Colitis [Recovered/Resolved]
  - Basal cell carcinoma [Not Recovered/Not Resolved]
  - Ill-defined disorder [Unknown]
  - Blindness unilateral [Not Recovered/Not Resolved]
  - Hemiparesis [Recovering/Resolving]
  - Necrotising retinitis [Not Recovered/Not Resolved]
  - Retinitis viral [Recovered/Resolved]
  - Encephalitis [Unknown]
  - Varicella zoster virus infection [Recovered/Resolved]
  - Cytopenia [Unknown]
  - Bacterial disease carrier [Unknown]
  - Febrile neutropenia [Unknown]
  - Leukopenia [Unknown]
  - Neutropenia [Unknown]
  - Pneumonia [Unknown]
  - Myelosuppression [Unknown]
  - Drug-induced liver injury [Not Recovered/Not Resolved]
  - Syncope [Unknown]
  - Central nervous system lesion [Not Recovered/Not Resolved]
  - Toxoplasmosis [Recovered/Resolved]
  - Cataract subcapsular [Unknown]
  - Dermatitis atopic [Unknown]
  - Weight decreased [Unknown]
  - Drug hypersensitivity [Unknown]
  - Blepharospasm [Recovered/Resolved]
  - Rectal tenesmus [Unknown]
  - Fungal infection [Unknown]
  - Folliculitis [Unknown]
  - Impulse-control disorder [Recovered/Resolved]
  - Nephropathy toxic [Unknown]
  - Mucosal disorder [Unknown]
  - Liver function test increased [Not Recovered/Not Resolved]
  - Pruritus allergic [Unknown]
  - Pain [Unknown]
  - Abdominal pain upper [Unknown]
  - Abdominal pain [Unknown]
  - Diarrhoea [Recovered/Resolved]
  - Cough [Recovered/Resolved]
  - Pyrexia [Recovered/Resolved]
  - Dizziness [Unknown]
  - Nausea [Unknown]
  - Pyrexia [Recovered/Resolved]
  - Bacterial disease carrier [Unknown]
  - Blood pressure increased [Recovered/Resolved]
  - Dermatitis atopic [Unknown]
  - Gallbladder polyp [Unknown]
  - Impulse-control disorder [Recovered/Resolved]
  - Hypersensitivity [Recovered/Resolved]

NARRATIVE: CASE EVENT DATE: 20141101
